FAERS Safety Report 12213922 (Version 1)
Quarter: 2016Q1

REPORT INFORMATION
  Report Type: Other
  Country: US (occurrence: US)
  Receive Date: 20160328
  Receipt Date: 20160328
  Transmission Date: 20160526
  Serious: No
  Sender: FDA-Public Use
  Company Number: US-DEP_02602_2015

PATIENT
  Sex: Male

DRUGS (7)
  1. GRALISE [Suspect]
     Active Substance: GABAPENTIN
     Indication: PAIN IN EXTREMITY
     Dosage: WITH THE EVENING MEAL
     Route: 048
     Dates: start: 201403
  2. MORPHINE [Concomitant]
     Active Substance: MORPHINE
     Indication: CANCER PAIN
     Dosage: DF
  3. GRALISE [Suspect]
     Active Substance: GABAPENTIN
     Indication: CANCER PAIN
     Dosage: WITH THE EVENING MEAL
     Route: 048
     Dates: start: 201403
  4. MORPHINE [Concomitant]
     Active Substance: MORPHINE
     Indication: PAIN IN EXTREMITY
     Dosage: DF
  5. KADIAN [Concomitant]
     Active Substance: MORPHINE SULFATE
     Indication: CANCER PAIN
     Dosage: DF
  6. KADIAN [Concomitant]
     Active Substance: MORPHINE SULFATE
     Indication: PAIN IN EXTREMITY
     Dosage: DF
  7. GRALISE [Suspect]
     Active Substance: GABAPENTIN
     Indication: OFF LABEL USE
     Dosage: WITH THE EVENING MEAL
     Route: 048
     Dates: start: 201403

REACTIONS (1)
  - Off label use [Not Recovered/Not Resolved]

NARRATIVE: CASE EVENT DATE: 201403
